FAERS Safety Report 18387226 (Version 1)
Quarter: 2020Q4

REPORT INFORMATION
  Report Type: Spontaneous
  Country: CN (occurrence: CN)
  Receive Date: 20201015
  Receipt Date: 20201015
  Transmission Date: 20210114
  Serious: Yes (Hospitalization)
  Sender: FDA-Public Use
  Company Number: NVSC2020CN274883

PATIENT
  Age: 6 Year
  Sex: Male
  Weight: 20 kg

DRUGS (2)
  1. PREDNISOLONE. [Suspect]
     Active Substance: PREDNISOLONE
     Indication: BRONCHIECTASIS
     Dosage: 0.5 TO 1MG/KG, QD
     Route: 065
  2. CYCLOSPORINE. [Suspect]
     Active Substance: CYCLOSPORINE
     Indication: BRONCHIECTASIS
     Dosage: 25 MG, QD
     Route: 065

REACTIONS (3)
  - Bronchiectasis [Unknown]
  - Condition aggravated [Unknown]
  - Product use in unapproved indication [Unknown]
